FAERS Safety Report 12585825 (Version 2)
Quarter: 2017Q2

REPORT INFORMATION
  Report Type: Spontaneous
  Country: US (occurrence: US)
  Receive Date: 20160725
  Receipt Date: 20170623
  Transmission Date: 20170830
  Serious: No
  Sender: FDA-Public Use
  Company Number: US-ASTRAZENECA-2016SE73843

PATIENT
  Age: 26189 Day
  Sex: Female
  Weight: 90.7 kg

DRUGS (3)
  1. ADVAIR HFA [Concomitant]
     Active Substance: FLUTICASONE PROPIONATE\SALMETEROL XINAFOATE
     Indication: ASTHMA
     Route: 055
  2. TUDORZA PRESSAIR [Suspect]
     Active Substance: ACLIDINIUM BROMIDE
     Indication: ASTHMA
     Dosage: 400 MCG ONE PUFF TWICE PER DAY FOR ABOUT 4 MONTHS
     Route: 055
  3. PROAIR/ RESCUE INHALER [Concomitant]
     Indication: ASTHMA
     Route: 055

REACTIONS (5)
  - Device malfunction [Unknown]
  - Product use in unapproved indication [Unknown]
  - Off label use [Unknown]
  - Dyspnoea [Unknown]
  - Drug dose omission [Unknown]

NARRATIVE: CASE EVENT DATE: 20160703
